FAERS Safety Report 11788512 (Version 1)
Quarter: 2015Q4

REPORT INFORMATION
  Report Type: Spontaneous
  Country: JP (occurrence: JP)
  Receive Date: 20151201
  Receipt Date: 20151201
  Transmission Date: 20160305
  Serious: Yes (Other)
  Sender: FDA-Public Use
  Company Number: JP-ELI_LILLY_AND_COMPANY-JP201511008367

PATIENT
  Age: 32 Year
  Sex: Male

DRUGS (2)
  1. AMOXAN [Concomitant]
     Active Substance: AMOXAPINE
     Route: 048
  2. CYMBALTA [Suspect]
     Active Substance: DULOXETINE HYDROCHLORIDE
     Indication: PRODUCT USED FOR UNKNOWN INDICATION
     Dosage: 40 MG, QD
     Route: 048
     Dates: end: 201511

REACTIONS (2)
  - Appendicitis [Unknown]
  - Seizure [Unknown]

NARRATIVE: CASE EVENT DATE: 201511
